FAERS Safety Report 11500073 (Version 1)
Quarter: 2015Q3

REPORT INFORMATION
  Report Type: Spontaneous
  Country: US (occurrence: None)
  Receive Date: 20150910
  Receipt Date: 20150910
  Transmission Date: 20151125
  Serious: No
  Sender: FDA-Public Use
  Company Number: 2014-PEL-000241

PATIENT
  Age: 8 Year
  Sex: Male

DRUGS (7)
  1. TERBUTALINE (TERBUTALINE) NEBULISER SOLUTION, 5MG/2ML [Concomitant]
     Active Substance: TERBUTALINE
  2. MAGNESIUM SULFATE (MAGNESIUM SULFATE) (MAGNESIUM SULFATE) [Concomitant]
     Active Substance: MAGNESIUM SULFATE
  3. ALBUTEROL (SALBUTAMOL)? [Concomitant]
  4. ISOFLURANE. [Suspect]
     Active Substance: ISOFLURANE
     Indication: STATUS ASTHMATICUS
     Dosage: 1.8%, UNK, INHALATION
     Route: 055
  5. OXYGEN (OXYGEN) [Concomitant]
     Active Substance: OXYGEN
  6. CORTICOSTEROIDS [Concomitant]
     Active Substance: CORTICOSTEROID NOS
  7. EPINEPHRINE (EPINEPHRINE) [Concomitant]

REACTIONS (2)
  - Pupil fixed [None]
  - Off label use [None]
